FAERS Safety Report 9608054 (Version 1)
Quarter: 2013Q4

REPORT INFORMATION
  Report Type: Spontaneous
  Country: US (occurrence: US)
  Receive Date: 20131009
  Receipt Date: 20131009
  Transmission Date: 20140711
  Serious: No
  Sender: FDA-Public Use
  Company Number: US-PURDUE-USA-2012-0094373

PATIENT
  Sex: Female

DRUGS (15)
  1. BUTRANS [Suspect]
     Indication: OSTEOARTHRITIS
     Dosage: 10 MCG, WEEKLY
     Route: 062
     Dates: start: 20121010
  2. METHOTREXATE [Concomitant]
     Indication: OSTEOARTHRITIS
     Dosage: 15 MG, WEEKLY
     Route: 048
  3. HYDROCODONE                        /00060002/ [Concomitant]
     Indication: BREAKTHROUGH PAIN
     Dosage: UNK, PRN
     Route: 048
  4. ROBAXIN [Concomitant]
     Indication: MUSCLE SPASMS
     Dosage: 750 MG, PRN
     Route: 048
  5. K-LOR [Concomitant]
     Indication: FLUID OVERLOAD
     Dosage: 40 MEQ, PRN
     Route: 048
  6. ISOSORBIDE MONONITRATE [Concomitant]
     Indication: PRODUCT USED FOR UNKNOWN INDICATION
     Dosage: 60 MG, DAILY
     Route: 048
  7. SEROQUEL [Concomitant]
     Indication: SLEEP DISORDER
     Dosage: 100 MG, HS
     Route: 048
  8. LISINOPRIL                         /00894002/ [Concomitant]
     Dosage: 2.5 MG, DAILY
     Route: 048
  9. SYNTHROID [Concomitant]
     Dosage: 088 MG, DAILY
     Route: 048
  10. NEXIUM                             /01479302/ [Concomitant]
     Indication: GASTROOESOPHAGEAL REFLUX DISEASE
     Dosage: 1 TABLET, DAILY
     Route: 048
  11. LIPITOR [Concomitant]
     Indication: BLOOD CHOLESTEROL
     Dosage: 80 MG, DAILY
     Route: 048
  12. PREMARIN [Concomitant]
     Route: 048
  13. XANAX [Concomitant]
     Indication: ANXIETY
     Dosage: 1 MG, HS
     Route: 048
  14. XANAX [Concomitant]
     Indication: SLEEP DISORDER
  15. CYMBALTA [Concomitant]
     Indication: ANXIETY
     Dosage: 60 MG, BID
     Route: 048

REACTIONS (3)
  - Inadequate analgesia [Recovering/Resolving]
  - Product colour issue [Unknown]
  - Insomnia [Not Recovered/Not Resolved]
